FAERS Safety Report 5474077-9 (Version None)
Quarter: 2007Q4

REPORT INFORMATION
  Report Type: 
  Country: None (occurrence: None)
  Receive Date: 20071002
  Receipt Date: 20070919
  Transmission Date: 20080405
  Serious: Yes (Hospitalization)
  Sender: FDA-Public Use
  Company Number: PHBS2007DE15884

PATIENT
  Age: 32 Year
  Sex: Male
  Weight: 102.1 kg

DRUGS (4)
  1. CLOZAPINE [Suspect]
     Indication: SCHIZOPHRENIA
     Dosage: 550 MG,/D
  2. CLOZAPINE [Suspect]
     Dosage: 200 MG/D
  3. FLUPENTIXOL [Concomitant]
     Indication: SCHIZOPHRENIA
     Dosage: 30 MG/EVERY 14 DAYS
     Route: 030
  4. FLUOXETINE [Concomitant]

REACTIONS (4)
  - AFFECT LABILITY [None]
  - OBSESSIVE-COMPULSIVE DISORDER [None]
  - PSYCHOMOTOR HYPERACTIVITY [None]
  - WEIGHT INCREASED [None]
